FAERS Safety Report 20739927 (Version 3)
Quarter: 2023Q1

REPORT INFORMATION
  Report Type: Spontaneous
  Country: DE (occurrence: DE)
  Receive Date: 20220422
  Receipt Date: 20230130
  Transmission Date: 20230417
  Serious: Yes (Hospitalization, Other)
  Sender: FDA-Public Use
  Company Number: None

PATIENT
  Age: 41 Year
  Sex: Female

DRUGS (14)
  1. QUETIAPINE [Suspect]
     Active Substance: QUETIAPINE
     Indication: Bipolar disorder
     Dosage: 50  200 MG DAILY
     Route: 065
  2. VALPROATE [Suspect]
     Active Substance: VALPROIC ACID
     Indication: Bipolar disorder
     Dosage: UNK
     Route: 048
  3. LITHIUM [Suspect]
     Active Substance: LITHIUM
     Indication: Bipolar disorder
     Dosage: UNK
     Route: 065
  4. VALPROIC ACID [Suspect]
     Active Substance: VALPROIC ACID
     Indication: Bipolar disorder
     Dosage: UNK UNK, QD
     Route: 048
  5. VALPROATE SODIUM [Suspect]
     Active Substance: VALPROATE SODIUM
     Indication: Bipolar disorder
     Dosage: 1800 MG, QD
     Route: 048
     Dates: start: 201310
  6. LAMOTRIGINE [Concomitant]
     Active Substance: LAMOTRIGINE
     Indication: Product used for unknown indication
     Dosage: 100 MG, QD
     Route: 065
  7. L-Levothyroxine [Concomitant]
     Indication: Product used for unknown indication
     Dosage: 75 UG, QD
     Route: 065
  8. CITALOPRAM [Concomitant]
     Active Substance: CITALOPRAM HYDROBROMIDE
     Indication: Product used for unknown indication
     Dosage: 20 MG, QD
     Route: 065
  9. ARIPIPRAZOLE [Concomitant]
     Active Substance: ARIPIPRAZOLE
     Indication: Product used for unknown indication
     Dosage: 5 MG, QD
     Route: 065
  10. NOVORAPID [Concomitant]
     Active Substance: INSULIN ASPART
     Indication: Gestational diabetes
     Dosage: 5.5 IU, THROUGHOUT THE DAY
     Route: 058
     Dates: start: 2014
  11. MIRTAZAPINE [Concomitant]
     Active Substance: MIRTAZAPINE
     Indication: Product used for unknown indication
     Dosage: 30 MG, QD
     Route: 065
  12. INSULIN HUMAN [Concomitant]
     Active Substance: INSULIN HUMAN
     Indication: Gestational diabetes
     Dosage: 6 IU, QD
     Route: 058
     Dates: start: 2014
  13. AMLODIPINE [Concomitant]
     Active Substance: AMLODIPINE BESYLATE
     Indication: Product used for unknown indication
     Dosage: 1 MG, Q12H, 1-0-0-1 MG
     Route: 065
  14. PANTOPRAZOLE [Concomitant]
     Active Substance: PANTOPRAZOLE
     Indication: Product used for unknown indication
     Dosage: 40 MG, QD
     Route: 065

REACTIONS (23)
  - Blood glucose increased [Unknown]
  - Abdominal pain [Recovered/Resolved]
  - Diarrhoea [Unknown]
  - Gastric disorder [Unknown]
  - Sciatica [Unknown]
  - Hypothyroidism [Unknown]
  - Blood glucose fluctuation [Unknown]
  - Constipation [Unknown]
  - Abdominal distension [Recovered/Resolved]
  - Gestational diabetes [Unknown]
  - Exposure during pregnancy [Unknown]
  - Frequent bowel movements [Recovered/Resolved]
  - Obesity [Unknown]
  - Mania [Unknown]
  - Adverse drug reaction [Unknown]
  - Bipolar disorder [Unknown]
  - Bipolar I disorder [Unknown]
  - Sedation [Unknown]
  - Weight increased [Unknown]
  - Hypertension [Unknown]
  - Polyhydramnios [Unknown]
  - Tremor [Unknown]
  - Live birth [Unknown]

NARRATIVE: CASE EVENT DATE: 20130101
